FAERS Safety Report 9905676 (Version 2)
Quarter: 2014Q1

REPORT INFORMATION
  Report Type: Spontaneous
  Country: US (occurrence: US)
  Receive Date: 20140218
  Receipt Date: 20140218
  Transmission Date: 20141002
  Serious: No
  Sender: FDA-Public Use
  Company Number: US-GILEAD-2012-0048815

PATIENT
  Sex: Female

DRUGS (3)
  1. LETAIRIS [Suspect]
     Indication: PRODUCT USED FOR UNKNOWN INDICATION
     Dosage: 10 MG, UNK
     Route: 048
     Dates: start: 20111215
  2. LETAIRIS [Suspect]
     Dosage: 5 UNK, UNK
     Route: 048
  3. REVATIO [Concomitant]

REACTIONS (3)
  - Local swelling [Unknown]
  - Weight increased [Unknown]
  - Swelling [Unknown]
